FAERS Safety Report 12556340 (Version 1)
Quarter: 2016Q3

REPORT INFORMATION
  Report Type: Spontaneous
  Country: US (occurrence: None)
  Receive Date: 20160713
  Receipt Date: 20160713
  Transmission Date: 20161109
  Serious: Yes (Life-Threatening, Hospitalization)
  Sender: FDA-Public Use
  Company Number: None

PATIENT
  Age: 55 Year
  Sex: Female
  Weight: 48.54 kg

DRUGS (1)
  1. HARVONI [Suspect]
     Active Substance: LEDIPASVIR\SOFOSBUVIR
     Indication: HEPATITIS B
     Route: 048
     Dates: start: 201505, end: 201506

REACTIONS (4)
  - Malaise [None]
  - Red blood cell abnormality [None]
  - White blood cell disorder [None]
  - Neoplasm malignant [None]

NARRATIVE: CASE EVENT DATE: 20150601
